FAERS Safety Report 16826806 (Version 1)
Quarter: 2019Q3

REPORT INFORMATION
  Report Type: Spontaneous
  Country: CA (occurrence: CA)
  Receive Date: 20190919
  Receipt Date: 20190919
  Transmission Date: 20191005
  Serious: Yes (Other)
  Sender: FDA-Public Use
  Company Number: CA-TEVA-2019-CA-1109526

PATIENT
  Age: 62 Year
  Sex: Female

DRUGS (24)
  1. BUPROPION. [Concomitant]
     Active Substance: BUPROPION
  2. COLACE [Concomitant]
     Active Substance: DOCUSATE SODIUM
  3. GABAPENTIN. [Concomitant]
     Active Substance: GABAPENTIN
  4. SULFASALAZINE. [Concomitant]
     Active Substance: SULFASALAZINE
  5. RITUXIMAB GP2013 [Suspect]
     Active Substance: RITUXIMAB
     Indication: RHEUMATOID ARTHRITIS
     Route: 042
  6. ACETAMINOPHEN. [Concomitant]
     Active Substance: ACETAMINOPHEN
  7. QUETIAPINE. [Concomitant]
     Active Substance: QUETIAPINE
  8. SPIRIVA [Concomitant]
     Active Substance: TIOTROPIUM BROMIDE MONOHYDRATE
  9. AMLODIPINE [Suspect]
     Active Substance: AMLODIPINE BESYLATE
     Indication: PRODUCT USED FOR UNKNOWN INDICATION
     Route: 065
  10. PANTOLOC /01263204/ [Concomitant]
     Active Substance: PANTOPRAZOLE SODIUM
  11. SYNTHROID [Concomitant]
     Active Substance: LEVOTHYROXINE SODIUM
  12. IRBESARTAN/HCTZ [Suspect]
     Active Substance: HYDROCHLOROTHIAZIDE\IRBESARTAN
     Indication: PRODUCT USED FOR UNKNOWN INDICATION
     Route: 065
  13. RITUXIMAB GP2013 [Suspect]
     Active Substance: RITUXIMAB
     Indication: POLYARTHRITIS
     Route: 042
  14. DIPHENHYDRAMINE. [Concomitant]
     Active Substance: DIPHENHYDRAMINE
  15. HYDROXYCHLOROQUINE SULFATE TABLETS, USP [Concomitant]
     Active Substance: HYDROXYCHLOROQUINE SULFATE
  16. METHYLPREDNISOLONE NOS [Concomitant]
     Active Substance: METHYLPREDNISOLONE
  17. VITAMIN B12 [Concomitant]
     Active Substance: CYANOCOBALAMIN
  18. FOLIC ACID. [Concomitant]
     Active Substance: FOLIC ACID
  19. SERTRALINE [Concomitant]
     Active Substance: SERTRALINE HYDROCHLORIDE
  20. MELOXICAM. [Suspect]
     Active Substance: MELOXICAM
     Indication: PRODUCT USED FOR UNKNOWN INDICATION
     Route: 065
  21. ADVAIR HFA [Concomitant]
     Active Substance: FLUTICASONE PROPIONATE\SALMETEROL XINAFOATE
  22. METHOTREXATE. [Concomitant]
     Active Substance: METHOTREXATE
  23. PREDNISONE. [Concomitant]
     Active Substance: PREDNISONE
  24. VENTOLIN [Concomitant]
     Active Substance: ALBUTEROL SULFATE

REACTIONS (4)
  - Heart rate increased [Not Recovered/Not Resolved]
  - Infusion related reaction [Not Recovered/Not Resolved]
  - Back pain [Not Recovered/Not Resolved]
  - Hypertension [Not Recovered/Not Resolved]
